FAERS Safety Report 4874194-8 (Version None)
Quarter: 2006Q1

REPORT INFORMATION
  Report Type: 
  Country: None (occurrence: None)
  Receive Date: 20060104
  Receipt Date: 20051219
  Transmission Date: 20060701
  Serious: Yes (Hospitalization, Disabling, Other)
  Sender: FDA-Public Use
  Company Number: 2005170560

PATIENT
  Sex: Male

DRUGS (5)
  1. VIAGRA [Suspect]
     Indication: ERECTILE DYSFUNCTION
  2. DIOVAN [Concomitant]
  3. GLUCOPHAGE [Concomitant]
  4. CRESTOR [Concomitant]
  5. ONE-A-DAY (ASCORBIC ACID, CYANOCOBALAMIN, ERGOCALCIFEROL, NICOTINAMIDE [Concomitant]

REACTIONS (5)
  - BLOOD TESTOSTERONE DECREASED [None]
  - CEREBROVASCULAR ACCIDENT [None]
  - COLONIC POLYP [None]
  - DIFFICULTY IN WALKING [None]
  - DRUG INEFFECTIVE [None]
